FAERS Safety Report 6907029 (Version 9)
Quarter: 2012Q4

REPORT INFORMATION
  Report Type: 
  Country: US (occurrence: US)
  Receive Date: 20080123
  Receipt Date: 20121112
  Transmission Date: 20130627
  Serious: Yes (Hospitalization)
  Sender: FDA-Public Use
  Company Number: US-BIOGENIDEC-2008BI001464

PATIENT
  Age: 52 Year
  Sex: Female

DRUGS (2)
  1. AVONEX [Suspect]
     Indication: MULTIPLE SCLEROSIS
     Route: 030
     Dates: start: 20050625, end: 20071101
  2. AVONEX [Suspect]
     Indication: MULTIPLE SCLEROSIS
     Route: 030
     Dates: start: 20080223

REACTIONS (8)
  - Osteoarthritis [Recovered/Resolved]
  - Medical device pain [Recovered/Resolved]
  - Joint ankylosis [Recovered/Resolved]
  - Abdominal hernia repair [Recovered/Resolved]
  - Arthrofibrosis [Unknown]
  - Post procedural complication [Unknown]
  - Limb operation [Recovered/Resolved]
  - Pain in extremity [Not Recovered/Not Resolved]
